FAERS Safety Report 17876553 (Version 4)
Quarter: 2020Q4

REPORT INFORMATION
  Report Type: Report from Study
  Country: US (occurrence: US)
  Receive Date: 20200609
  Receipt Date: 20201225
  Transmission Date: 20210113
  Serious: No
  Sender: FDA-Public Use
  Company Number: NVSC2020US160150

PATIENT
  Age: 56 Year
  Sex: Male

DRUGS (1)
  1. COSENTYX [Suspect]
     Active Substance: SECUKINUMAB
     Indication: PSORIATIC ARTHROPATHY
     Dosage: UNK UNK, Q4W
     Route: 058

REACTIONS (5)
  - Joint swelling [Recovering/Resolving]
  - Rash macular [Recovering/Resolving]
  - Inappropriate schedule of product administration [Recovering/Resolving]
  - Swelling [Recovering/Resolving]
  - Peripheral swelling [Recovering/Resolving]

NARRATIVE: CASE EVENT DATE: 202003
